FAERS Safety Report 8060505-1 (Version None)
Quarter: 2012Q1

REPORT INFORMATION
  Report Type: 
  Country: None (occurrence: None)
  Receive Date: 20120119
  Receipt Date: 20120119
  Transmission Date: 20120608
  Serious: Yes (Hospitalization, Other)
  Sender: FDA-Public Use
  Company Number: None

PATIENT
  Sex: Male
  Weight: 104.7809 kg

DRUGS (1)
  1. XARELTO [Suspect]
     Indication: THROMBOSIS PROPHYLAXIS
     Dosage: 10MG DAILY ORAL
     Route: 048
     Dates: start: 20111108

REACTIONS (2)
  - LOSS OF CONSCIOUSNESS [None]
  - GASTROINTESTINAL HAEMORRHAGE [None]
